FAERS Safety Report 10049822 (Version 1)
Quarter: 2014Q2

REPORT INFORMATION
  Report Type: Spontaneous
  Country: ES (occurrence: ES)
  Receive Date: 20140401
  Receipt Date: 20140401
  Transmission Date: 20141212
  Serious: Yes (Hospitalization)
  Sender: FDA-Public Use
  Company Number: ES-MERCK-1403ESP012753

PATIENT
  Age: 77 Year
  Sex: Female

DRUGS (5)
  1. NASONEX [Suspect]
     Route: 065
     Dates: start: 20140307
  2. ACETYLCYSTEINE [Suspect]
     Route: 065
     Dates: start: 20140307
  3. LERCANIDIPINE [Suspect]
     Route: 048
     Dates: start: 20140307
  4. EUTIROX [Concomitant]
  5. HYDROCHLOROTHIAZIDE (+) LISINOPRIL [Concomitant]

REACTIONS (2)
  - Urticaria [Recovered/Resolved]
  - Pruritus [Recovered/Resolved]
